FAERS Safety Report 16024577 (Version 2)
Quarter: 2019Q1

REPORT INFORMATION
  Report Type: Other
  Country: CA (occurrence: CA)
  Receive Date: 20190301
  Receipt Date: 20190307
  Transmission Date: 20190418
  Serious: Yes (Death, Other)
  Sender: FDA-Public Use
  Company Number: CA-DUCHESNAY INC.-2063409

PATIENT
  Sex: Female
  Weight: 2.41 kg

DRUGS (6)
  1. DICLEGIS [Suspect]
     Active Substance: DOXYLAMINE SUCCINATE\PYRIDOXINE HYDROCHLORIDE
     Indication: MORNING SICKNESS
     Route: 064
     Dates: start: 20180213, end: 20180406
  2. NICOTINE. [Suspect]
     Active Substance: NICOTINE
     Route: 063
     Dates: start: 201809
  3. SUBUTEX [Suspect]
     Active Substance: BUPRENORPHINE HYDROCHLORIDE
     Route: 064
     Dates: start: 20180704, end: 20180928
  4. NICOTINE. [Suspect]
     Active Substance: NICOTINE
     Route: 064
     Dates: start: 20171219, end: 20180928
  5. COCAINE [Suspect]
     Active Substance: COCAINE
     Route: 064
     Dates: start: 20171219
  6. SUBUTEX [Suspect]
     Active Substance: BUPRENORPHINE HYDROCHLORIDE
     Route: 063
     Dates: start: 201809

REACTIONS (2)
  - Foetal exposure during pregnancy [Recovered/Resolved]
  - Sudden infant death syndrome [Fatal]

NARRATIVE: CASE EVENT DATE: 20180213
